FAERS Safety Report 24114102 (Version 1)
Quarter: 2024Q3

REPORT INFORMATION
  Report Type: Spontaneous
  Country: US (occurrence: US)
  Receive Date: 20240720
  Receipt Date: 20240720
  Transmission Date: 20241016
  Serious: No
  Sender: UROGEN PHARMA
  Company Number: US-UROGEN PHARMA LTD.-2024-UGN-000067

PATIENT

DRUGS (5)
  1. JELMYTO [Suspect]
     Active Substance: MITOMYCIN
     Indication: Transitional cell cancer of the renal pelvis and ureter
     Dosage: 10 MILLILITER, ONCE A WEEK (INSTILLATION)
     Dates: start: 20240502, end: 20240502
  2. JELMYTO [Suspect]
     Active Substance: MITOMYCIN
     Dosage: 15 MILLILITER, ONCE A WEEK (INSTILLATION)
     Dates: start: 20240509, end: 20240509
  3. JELMYTO [Suspect]
     Active Substance: MITOMYCIN
     Dosage: 15 MILLILITER, ONCE A WEEK (INSTILLATION)
     Dates: start: 20240516, end: 20240516
  4. JELMYTO [Suspect]
     Active Substance: MITOMYCIN
     Dosage: 15 MILLILITER, ONCE A WEEK (INSTILLATION)
     Dates: start: 20240523, end: 20240523
  5. JELMYTO [Suspect]
     Active Substance: MITOMYCIN
     Dosage: 15 MILLILITER, ONCE A WEEK (INSTILLATION)
     Dates: start: 20240530, end: 20240530

REACTIONS (1)
  - Instillation site pain [Recovered/Resolved]

NARRATIVE: CASE EVENT DATE: 20240523
